FAERS Safety Report 10291042 (Version 1)
Quarter: 2014Q3

REPORT INFORMATION
  Report Type: Spontaneous
  Country: IT (occurrence: None)
  Receive Date: 20140708
  Receipt Date: 20140708
  Transmission Date: 20150326
  Serious: Yes (Other)
  Sender: FDA-Public Use
  Company Number: AUR-APL-2014-07158

PATIENT
  Age: 27 Year
  Sex: Male

DRUGS (1)
  1. AMOXICILLIN. [Suspect]
     Active Substance: AMOXICILLIN
     Indication: COUGH
     Dosage: 1 G, TOTAL, ORAL
     Route: 048
     Dates: start: 20140603, end: 20140603

REACTIONS (1)
  - Asthma [None]

NARRATIVE: CASE EVENT DATE: 20140604
